FAERS Safety Report 4635875-4 (Version None)
Quarter: 2005Q2

REPORT INFORMATION
  Report Type: 
  Country: None (occurrence: None)
  Receive Date: 20050415
  Receipt Date: 20050324
  Transmission Date: 20051028
  Serious: Yes (Hospitalization)
  Sender: FDA-Public Use
  Company Number: JP-NOVOPROD-243257

PATIENT
  Age: 80 Year
  Sex: Female

DRUGS (11)
  1. NOVOLIN 30R CHU [Suspect]
     Indication: INSULIN-REQUIRING TYPE II DIABETES MELLITUS
     Dosage: 17 IU, QD
     Route: 058
  2. TAKEPRON [Concomitant]
     Indication: GASTRIC ULCER
     Dosage: 30 MG, QD
     Route: 048
  3. MUCOSTA [Concomitant]
     Indication: GASTRIC ULCER
     Dosage: 200 MG, QD
     Route: 048
  4. MAGNESIUM OXIDE [Concomitant]
     Indication: CONSTIPATION
     Dosage: 1.5 G, QD
     Route: 048
  5. KALIMATE [Concomitant]
     Indication: HYPERKALAEMIA
     Dosage: 5 G, QD
     Route: 048
  6. TANATRIL ^ALGOL^ [Concomitant]
     Indication: MYOCARDIAL INFARCTION
     Dosage: 5 MG, QD
     Route: 048
  7. ANCARON [Concomitant]
     Indication: HYPERKALAEMIA
     Dosage: 200 MG, QD
     Route: 048
  8. FUROSEMIDE [Concomitant]
     Indication: MYOCARDIAL INFARCTION
     Dosage: 20 MG, QD
     Route: 048
  9. PANALDINE [Concomitant]
     Indication: MYOCARDIAL INFARCTION
     Dosage: 200 MG, QD
     Route: 048
  10. ASPIRIN [Concomitant]
     Indication: MYOCARDIAL INFARCTION
     Dosage: 200 MG, QD
     Route: 048
  11. MELBIN [Concomitant]
     Indication: INSULIN-REQUIRING TYPE II DIABETES MELLITUS
     Dosage: 500 MG, QD
     Route: 048

REACTIONS (3)
  - BLOOD PH INCREASED [None]
  - DYSPNOEA [None]
  - HYPOXIA [None]
